FAERS Safety Report 14554089 (Version 1)
Quarter: 2018Q1

REPORT INFORMATION
  Report Type: Spontaneous
  Country: US (occurrence: US)
  Receive Date: 20180208
  Receipt Date: 20180208
  Transmission Date: 20180509
  Serious: Yes (Hospitalization)
  Sender: FDA-Public Use
  Company Number: None

PATIENT
  Age: 44 Year
  Sex: Female
  Weight: 85.2 kg

DRUGS (2)
  1. DIPHENHYDRAMINE. [Suspect]
     Active Substance: DIPHENHYDRAMINE
     Indication: DYSPNOEA
     Route: 042
     Dates: start: 20120404, end: 20120404
  2. DIPHENHYDRAMINE. [Suspect]
     Active Substance: DIPHENHYDRAMINE
     Indication: THROAT TIGHTNESS
     Route: 042
     Dates: start: 20120404, end: 20120404

REACTIONS (4)
  - Hypertension [None]
  - Tachycardia [None]
  - Respiratory distress [None]
  - Tachypnoea [None]

NARRATIVE: CASE EVENT DATE: 20120404
